FAERS Safety Report 7205761-4 (Version None)
Quarter: 2010Q4

REPORT INFORMATION
  Report Type: 
  Country: None (occurrence: None)
  Receive Date: 20101231
  Receipt Date: 20101228
  Transmission Date: 20110411
  Serious: Yes (Hospitalization)
  Sender: FDA-Public Use
  Company Number: US-PFIZER INC-2010181022

PATIENT
  Sex: Female

DRUGS (3)
  1. XANAX [Suspect]
     Indication: MENTAL DISORDER
     Dosage: 0.5 MG AS NEEDED
     Route: 048
  2. SYNTHROID [Concomitant]
  3. PEPCID [Concomitant]

REACTIONS (1)
  - MYOCARDIAL INFARCTION [None]
